FAERS Safety Report 25734264 (Version 1)
Quarter: 2025Q3

REPORT INFORMATION
  Report Type: Report from Study
  Country: US (occurrence: US)
  Receive Date: 20250828
  Receipt Date: 20250828
  Transmission Date: 20251020
  Serious: Yes (Other)
  Sender: ABBVIE
  Company Number: US-ABBVIE-6433690

PATIENT
  Age: 59 Year
  Sex: Female

DRUGS (1)
  1. SKYRIZI [Suspect]
     Active Substance: RISANKIZUMAB-RZAA
     Indication: Psoriatic arthropathy
     Route: 058
     Dates: start: 20240719

REACTIONS (8)
  - Spinal cord compression [Unknown]
  - Ataxia [Unknown]
  - Spondylitis [Not Recovered/Not Resolved]
  - Rash [Unknown]
  - Stenosis [Unknown]
  - Cognitive disorder [Unknown]
  - Arthritis [Not Recovered/Not Resolved]
  - Asthenia [Unknown]

NARRATIVE: CASE EVENT DATE: 20231201
